FAERS Safety Report 5510348-5 (Version None)
Quarter: 2007Q4

REPORT INFORMATION
  Report Type: 
  Country: None (occurrence: None)
  Receive Date: 20071108
  Receipt Date: 20071031
  Transmission Date: 20080405
  Serious: Yes (Hospitalization, Other)
  Sender: FDA-Public Use
  Company Number: US-PFIZER INC-2007045714

PATIENT
  Sex: Male
  Weight: 68 kg

DRUGS (2)
  1. BEXTRA [Suspect]
     Indication: ARTHRITIS
  2. CELEBREX [Concomitant]
     Indication: ARTHRITIS
     Dates: start: 19990101, end: 20031222

REACTIONS (1)
  - CEREBROVASCULAR ACCIDENT [None]
